FAERS Safety Report 7226862-0 (Version None)
Quarter: 2011Q1

REPORT INFORMATION
  Report Type: 
  Country: None (occurrence: None)
  Receive Date: 20110114
  Receipt Date: 20110104
  Transmission Date: 20110831
  Serious: Yes (Other)
  Sender: FDA-Public Use
  Company Number: PHHY2011US00967

PATIENT
  Sex: Male

DRUGS (1)
  1. EXFORGE HCT [Suspect]
     Dosage: 25 MG, QD
     Route: 048

REACTIONS (5)
  - OEDEMA PERIPHERAL [None]
  - CONVULSION [None]
  - PAIN IN EXTREMITY [None]
  - ARTHRALGIA [None]
  - NASOPHARYNGITIS [None]
